FAERS Safety Report 8986273 (Version 2)
Quarter: 2012Q4

REPORT INFORMATION
  Report Type: Report from Study
  Country: CA (occurrence: CA)
  Receive Date: 20121226
  Receipt Date: 20121227
  Transmission Date: 20130627
  Serious: Yes (Other)
  Sender: FDA-Public Use
  Company Number: CA-ROCHE-1167026

PATIENT
  Age: 36 Year
  Sex: Female
  Weight: 78 kg

DRUGS (2)
  1. RITUXIMAB [Suspect]
     Indication: IDIOPATHIC THROMBOCYTOPENIC PURPURA
     Dosage: 700 mg weekly
     Route: 042
     Dates: start: 20121120
  2. SYNTHROID [Concomitant]
     Route: 065

REACTIONS (11)
  - Dyspnoea [Recovered/Resolved]
  - Dysphagia [Recovered/Resolved]
  - Loss of consciousness [Recovered/Resolved]
  - Migraine [Unknown]
  - Dizziness [Recovered/Resolved]
  - Palpitations [Not Recovered/Not Resolved]
  - Headache [Not Recovered/Not Resolved]
  - Abnormal sensation in eye [Not Recovered/Not Resolved]
  - Tremor [Not Recovered/Not Resolved]
  - Hyperacusis [Not Recovered/Not Resolved]
  - Infusion related reaction [Recovered/Resolved]
